FAERS Safety Report 5073987-4 (Version None)
Quarter: 2006Q3

REPORT INFORMATION
  Report Type: 
  Country: None (occurrence: None)
  Receive Date: 20060808
  Receipt Date: 20060330
  Transmission Date: 20061208
  Serious: Yes (Hospitalization)
  Sender: FDA-Public Use
  Company Number: DE-ROCHE-442423

PATIENT
  Age: 51 Year
  Sex: Male
  Weight: 72.7 kg

DRUGS (2)
  1. CAPECITABINE [Suspect]
     Dosage: GIVEN ON DAYS 1-14 OF 21 DAY CYCLE AS PER PROTOCOL.
     Route: 048
     Dates: start: 20060117
  2. DOCETAXEL [Suspect]
     Indication: GASTRIC CANCER
     Route: 042
     Dates: start: 20060117

REACTIONS (1)
  - PNEUMOTHORAX [None]
